FAERS Safety Report 5772891-3 (Version None)
Quarter: 2008Q2

REPORT INFORMATION
  Report Type: 
  Country: None (occurrence: None)
  Receive Date: 20080613
  Receipt Date: 20080603
  Transmission Date: 20081010
  Serious: Yes (Life-Threatening, Hospitalization, Other)
  Sender: FDA-Public Use
  Company Number: JP-PFIZER INC-2008043999

PATIENT
  Age: 47 Year
  Sex: Male

DRUGS (1)
  1. ZOLOFT [Suspect]
     Dosage: DAILY DOSE:25MG
     Route: 048

REACTIONS (3)
  - ALTERED STATE OF CONSCIOUSNESS [None]
  - BLOOD PRESSURE DECREASED [None]
  - HYPERTHERMIA [None]
